FAERS Safety Report 15483737 (Version 2)
Quarter: 2018Q4

REPORT INFORMATION
  Report Type: Spontaneous
  Country: US (occurrence: US)
  Receive Date: 20181010
  Receipt Date: 20181012
  Transmission Date: 20190205
  Serious: No
  Sender: FDA-Public Use
  Company Number: US-ASTRAZENECA-2018SF19555

PATIENT
  Age: 76 Year
  Sex: Female
  Weight: 104.3 kg

DRUGS (3)
  1. VENTOLIN [Concomitant]
     Active Substance: ALBUTEROL SULFATE
     Indication: INHALATION THERAPY
     Dosage: AS REQUIRED
     Route: 055
  2. PULMICORT FLEXHALER [Suspect]
     Active Substance: BUDESONIDE
     Indication: ASTHMA
     Dosage: 180 UG,ONE PUFF TWO TIMES A DAY
     Route: 055
  3. PULMICORT FLEXHALER [Suspect]
     Active Substance: BUDESONIDE
     Indication: ASTHMA
     Dosage: 180 UG, 2 PUFFS TWO TIMES A DAY
     Route: 055

REACTIONS (8)
  - Visual impairment [Unknown]
  - Memory impairment [Unknown]
  - Cataract [Not Recovered/Not Resolved]
  - Cough [Not Recovered/Not Resolved]
  - Glaucoma [Recovering/Resolving]
  - Wheezing [Recovered/Resolved]
  - Drug ineffective [Unknown]
  - Dysphonia [Unknown]

NARRATIVE: CASE EVENT DATE: 2016
